FAERS Safety Report 24443776 (Version 2)
Quarter: 2024Q4

REPORT INFORMATION
  Report Type: Report from Study
  Country: US (occurrence: US)
  Receive Date: 20241016
  Receipt Date: 20241017
  Transmission Date: 20250114
  Serious: No
  Sender: ROCHE
  Company Number: US-ROCHE-2088820

PATIENT
  Age: 29 Year
  Sex: Female

DRUGS (2)
  1. RITUXAN [Suspect]
     Active Substance: RITUXIMAB
     Indication: Encephalopathy
     Dosage: 1000MG EVERY 6 MONTHS, REFILLS _ PRN
     Route: 041
  2. RITUXAN [Suspect]
     Active Substance: RITUXIMAB
     Indication: Susac^s syndrome

REACTIONS (3)
  - Off label use [Unknown]
  - Maternal exposure before pregnancy [Unknown]
  - No adverse event [Unknown]
